FAERS Safety Report 4388169-9 (Version None)
Quarter: 2004Q2

REPORT INFORMATION
  Report Type: 
  Country: None (occurrence: None)
  Receive Date: 20040625
  Receipt Date: 20040616
  Transmission Date: 20050107
  Serious: Yes (Other)
  Sender: FDA-Public Use
  Company Number: 2004032126

PATIENT
  Age: 75 Year
  Sex: Male
  Weight: 111.1313 kg

DRUGS (9)
  1. TIKOSYN [Suspect]
     Indication: ATRIAL FIBRILLATION
     Dosage: 500 MCG (250 MCG, 2 IN 1 D), ORAL
     Route: 048
     Dates: start: 20020917
  2. TIKOSYN [Suspect]
     Indication: HEART RATE IRREGULAR
     Dosage: 500 MCG (250 MCG, 2 IN 1 D), ORAL
     Route: 048
     Dates: start: 20020917
  3. CARVEDILOL [Concomitant]
  4. SPIRONOLACTONE [Concomitant]
  5. VALSARTAN [Concomitant]
  6. WARFARIN SODIUM [Concomitant]
  7. FUROSEMIDE [Concomitant]
  8. DIGOXIN [Concomitant]
  9. ALLOPURINOL [Concomitant]

REACTIONS (3)
  - RENAL CYST [None]
  - RENAL IMPAIRMENT [None]
  - UNEXPECTED THERAPEUTIC DRUG EFFECT [None]
